FAERS Safety Report 8712630 (Version 4)
Quarter: 2013Q4

REPORT INFORMATION
  Report Type: Spontaneous
  Country: US (occurrence: US)
  Receive Date: 20120808
  Receipt Date: 20131231
  Transmission Date: 20140711
  Serious: Yes (Hospitalization)
  Sender: FDA-Public Use
  Company Number: US-BAYER-2012-077154

PATIENT
  Age: 19 Year
  Sex: Female
  Weight: 74.83 kg

DRUGS (9)
  1. YAZ [Suspect]
     Indication: CONTRACEPTION
     Dosage: UNK
     Dates: start: 200807, end: 200901
  2. YAZ [Suspect]
     Indication: ACNE
  3. YAZ [Suspect]
     Indication: PREMENSTRUAL SYNDROME
  4. YASMIN [Suspect]
  5. IBUPROFEN [Concomitant]
     Dosage: 800 MG, TID
     Route: 048
     Dates: start: 20081113
  6. PRENATAL VITAMINS [Concomitant]
     Indication: SUPPLEMENTATION THERAPY
     Dosage: 1 DAILY
  7. CIPROFLOXACIN [Concomitant]
     Dosage: 500 MG, UNK
     Route: 048
  8. INDOMETHACIN [Concomitant]
     Dosage: 25 MG, UNK
     Route: 048
  9. CODEINE W/PARACETAMOL [Concomitant]
     Dosage: 30/300 MG
     Route: 048

REACTIONS (5)
  - Pulmonary embolism [None]
  - Deep vein thrombosis [None]
  - Pain [None]
  - Injury [None]
  - Mental disorder [None]
